FAERS Safety Report 7498783-X (Version None)
Quarter: 2011Q2

REPORT INFORMATION
  Report Type: 
  Country: None (occurrence: None)
  Receive Date: 20110524
  Receipt Date: 20110517
  Transmission Date: 20111010
  Serious: No
  Sender: FDA-Public Use
  Company Number: US-PFIZER INC-2011108166

PATIENT
  Sex: Male
  Weight: 108 kg

DRUGS (5)
  1. DEPO-TESTOSTERONE [Suspect]
     Indication: ASTHENIA
  2. DEPO-TESTOSTERONE [Suspect]
     Indication: OFF LABEL USE
     Dosage: 200 MG/ML
     Route: 030
  3. HYZAAR [Concomitant]
     Indication: BLOOD PRESSURE ABNORMAL
     Dosage: UNK
  4. DEPO-TESTOSTERONE [Suspect]
     Indication: PENIS DISORDER
  5. ARICEPT [Concomitant]
     Dosage: UNK

REACTIONS (1)
  - DRUG INEFFECTIVE [None]
